FAERS Safety Report 15395757 (Version 1)
Quarter: 2018Q3

REPORT INFORMATION
  Report Type: Spontaneous
  Country: CA (occurrence: CA)
  Receive Date: 20180918
  Receipt Date: 20180918
  Transmission Date: 20181010
  Serious: Yes (Other)
  Sender: FDA-Public Use
  Company Number: CA-CELLTRION INC.-2018CA020855

PATIENT

DRUGS (7)
  1. BUDESONIDE. [Concomitant]
     Active Substance: BUDESONIDE
     Dosage: UNK
  2. INFLECTRA [Suspect]
     Active Substance: INFLIXIMAB-DYYB
     Dosage: 300 MG, (EVERY 0, 2,  6 WEEKS, THEN EVERY 8   WEEKS)
     Route: 042
     Dates: start: 20180725
  3. COVERSYL                           /00790702/ [Concomitant]
     Active Substance: PERINDOPRIL
     Dosage: UNK
  4. INFLECTRA [Suspect]
     Active Substance: INFLIXIMAB-DYYB
     Indication: CROHN^S DISEASE
     Dosage: 300 MG,  (EVERY 0, 2,  6 WEEKS, THEN EVERY 8   WEEKS)
     Route: 042
     Dates: start: 20180711
  5. INFLECTRA [Suspect]
     Active Substance: INFLIXIMAB-DYYB
     Dosage: 300 MG,  (EVERY 0, 2,  6 WEEKS, THEN EVERY 8   WEEKS)
     Route: 042
     Dates: start: 20180822, end: 20180822
  6. METRONIDAZOLE                      /00012502/ [Concomitant]
     Dosage: UNK
  7. 5?ASA [Concomitant]
     Active Substance: MESALAMINE
     Dosage: UNK

REACTIONS (15)
  - Intentional underdose [Unknown]
  - White blood cell count increased [Recovered/Resolved]
  - Chills [Unknown]
  - Malaise [Unknown]
  - Flushing [Recovered/Resolved]
  - Nausea [Unknown]
  - Blood pressure fluctuation [Unknown]
  - Blood pressure decreased [Unknown]
  - Hypersensitivity [Unknown]
  - Feeling hot [Recovered/Resolved]
  - Pruritus [Unknown]
  - Infusion related reaction [Unknown]
  - Fatigue [Unknown]
  - Cough [Recovered/Resolved]
  - Urticaria [Recovered/Resolved]

NARRATIVE: CASE EVENT DATE: 20180711
